FAERS Safety Report 15285390 (Version 1)
Quarter: 2018Q3

REPORT INFORMATION
  Report Type: Spontaneous
  Country: US (occurrence: US)
  Receive Date: 20180801
  Receipt Date: 20180801
  Transmission Date: 20181010
  Serious: Yes (Hospitalization)
  Sender: FDA-Public Use
  Company Number: None

PATIENT
  Age: 62 Year
  Sex: Male
  Weight: 92 kg

DRUGS (1)
  1. BACITRACIN/NEOMYCIN/POLYMIXIN [Suspect]
     Active Substance: BACITRACIN\NEOMYCIN\POLYMYXIN
     Indication: ECZEMA
     Route: 061
     Dates: start: 20180603, end: 20170707

REACTIONS (3)
  - Dermatitis contact [None]
  - Rash maculo-papular [None]
  - Erythema multiforme [None]

NARRATIVE: CASE EVENT DATE: 20180711
